FAERS Safety Report 14432836 (Version 2)
Quarter: 2018Q1

REPORT INFORMATION
  Report Type: Other
  Country: JP (occurrence: JP)
  Receive Date: 20180124
  Receipt Date: 20180226
  Transmission Date: 20180509
  Serious: Yes (Life-Threatening, Other)
  Sender: FDA-Public Use
  Company Number: JP-ALSI-201800054

PATIENT
  Age: 21 Month
  Sex: Male
  Weight: 7.9 kg

DRUGS (1)
  1. OXYGEN 100% [Suspect]
     Active Substance: OXYGEN
     Indication: LUNG DISORDER

REACTIONS (2)
  - Abdominal distension [Recovered/Resolved]
  - Incorrect route of drug administration [Recovered/Resolved]
